FAERS Safety Report 5463255-0 (Version None)
Quarter: 2007Q3

REPORT INFORMATION
  Report Type: 
  Country: None (occurrence: None)
  Receive Date: 20070920
  Receipt Date: 20070911
  Transmission Date: 20080115
  Serious: Yes (Other)
  Sender: FDA-Public Use
  Company Number: US-JNJFOC-20070902495

PATIENT
  Sex: Female
  Weight: 88.45 kg

DRUGS (2)
  1. TOPAMAX [Suspect]
     Indication: MIGRAINE PROPHYLAXIS
     Dosage: 25 MG CAP IN MORNING AND TWO 15 MG CAPS IN EVENING
     Route: 048
  2. BIRTH CONTROL [Concomitant]

REACTIONS (4)
  - DIZZINESS [None]
  - DYSPNOEA [None]
  - PALPITATIONS [None]
  - WEIGHT DECREASED [None]
